FAERS Safety Report 10643983 (Version 5)
Quarter: 2015Q1

REPORT INFORMATION
  Report Type: Spontaneous
  Country: US (occurrence: US)
  Receive Date: 20141210
  Receipt Date: 20150322
  Transmission Date: 20150720
  Serious: No
  Sender: FDA-Public Use
  Company Number: US-ASTRAZENECA-2014SE93600

PATIENT
  Age: 31442 Day
  Sex: Female
  Weight: 72.6 kg

DRUGS (3)
  1. SYNTHROID [Concomitant]
     Active Substance: LEVOTHYROXINE SODIUM
     Indication: THYROID DISORDER
  2. AMLODIPINE [Concomitant]
     Active Substance: AMLODIPINE BESYLATE
     Indication: HYPERTENSION
  3. CRESTOR [Suspect]
     Active Substance: ROSUVASTATIN CALCIUM
     Indication: BLOOD CHOLESTEROL ABNORMAL
     Route: 048
     Dates: start: 20140104, end: 20141127

REACTIONS (12)
  - Haemoglobin decreased [Unknown]
  - Urine abnormality [Unknown]
  - Haemolytic anaemia [Recovered/Resolved]
  - Red blood cell count decreased [Recovering/Resolving]
  - Injection site haematoma [Unknown]
  - Hypertension [Unknown]
  - Depression [Unknown]
  - Feeling abnormal [Unknown]
  - Nightmare [Unknown]
  - Chromaturia [Recovered/Resolved]
  - Anxiety [Unknown]
  - Blood cholesterol increased [Unknown]

NARRATIVE: CASE EVENT DATE: 201410
